FAERS Safety Report 6015033-1 (Version None)
Quarter: 2008Q4

REPORT INFORMATION
  Report Type: 
  Country: None (occurrence: None)
  Receive Date: 20081221
  Receipt Date: 20081119
  Transmission Date: 20090506
  Serious: No
  Sender: FDA-Public Use
  Company Number: US-BAYER-200839103NA

PATIENT

DRUGS (1)
  1. CIPRO [Suspect]
     Indication: UNEVALUABLE EVENT
     Route: 042

REACTIONS (1)
  - EXTRAVASATION [None]
